FAERS Safety Report 9381933 (Version 2)
Quarter: 2014Q1

REPORT INFORMATION
  Report Type: Spontaneous
  Country: US (occurrence: US)
  Receive Date: 20130703
  Receipt Date: 20140204
  Transmission Date: 20141002
  Serious: Yes (Hospitalization)
  Sender: FDA-Public Use
  Company Number: US-BAYER-2013-081494

PATIENT
  Age: 22 Year
  Sex: Female

DRUGS (8)
  1. YAZ [Suspect]
     Dosage: UNK
     Dates: start: 201109
  2. YASMIN [Suspect]
     Dosage: UNK
     Dates: start: 201109
  3. OCELLA [Suspect]
     Dosage: UNK
     Dates: start: 201109
  4. GIANVI [Suspect]
     Dosage: UNK
     Dates: start: 201109
  5. BEYAZ [Suspect]
  6. CIPROFLOXACIN [Concomitant]
     Indication: PYELONEPHRITIS
     Dosage: UNK
     Route: 048
     Dates: start: 20120426
  7. CIPROFLOXACIN [Concomitant]
     Indication: URINARY TRACT INFECTION
  8. ROCEPHIN [Concomitant]

REACTIONS (9)
  - Pulmonary infarction [None]
  - Pulmonary embolism [None]
  - Pain [None]
  - Injury [None]
  - General physical health deterioration [None]
  - Pain [None]
  - Anxiety [None]
  - Emotional distress [None]
  - Anhedonia [None]
